FAERS Safety Report 13664521 (Version 5)
Quarter: 2017Q3

REPORT INFORMATION
  Report Type: Report from Study
  Country: BR (occurrence: BR)
  Receive Date: 20170619
  Receipt Date: 20170801
  Transmission Date: 20171127
  Serious: Yes (Death, Hospitalization, Other)
  Sender: FDA-Public Use
  Company Number: BR-JNJFOC-20170507072

PATIENT
  Age: 74 Year
  Sex: Male

DRUGS (7)
  1. ARANESP [Concomitant]
     Active Substance: DARBEPOETIN ALFA
     Dosage: 2 CYCLES
     Route: 065
     Dates: start: 20170512
  2. IMBRUVICA [Suspect]
     Active Substance: IBRUTINIB
     Indication: B-CELL SMALL LYMPHOCYTIC LYMPHOMA
     Route: 048
     Dates: start: 20170411, end: 20170613
  3. IMBRUVICA [Suspect]
     Active Substance: IBRUTINIB
     Indication: CHRONIC LYMPHOCYTIC LEUKAEMIA
     Route: 048
     Dates: start: 20170411, end: 20170613
  4. CONDROFLEX [Concomitant]
     Active Substance: CHONDROITIN SULFATE (BOVINE)\GLUCOSAMINE SULFATE
     Route: 065
  5. GRANULOKINE [Concomitant]
     Active Substance: FILGRASTIM
     Route: 065
  6. FOLIC ACID. [Concomitant]
     Active Substance: FOLIC ACID
     Route: 065
  7. CITONEURIN [Concomitant]
     Active Substance: CYANOCOBALAMIN\PYRIDOXINE HYDROCHLORIDE\THIAMINE
     Route: 065

REACTIONS (17)
  - Death [Fatal]
  - Insomnia [Unknown]
  - Asthenia [Unknown]
  - Weight decreased [Unknown]
  - Depressed mood [Not Recovered/Not Resolved]
  - Therapeutic response increased [Unknown]
  - Fatigue [Not Recovered/Not Resolved]
  - Diarrhoea [Unknown]
  - Laboratory test abnormal [Unknown]
  - Bedridden [Unknown]
  - Adverse drug reaction [Unknown]
  - Anaemia [Unknown]
  - Malaise [Unknown]
  - Therapeutic response unexpected [Unknown]
  - Decreased appetite [Unknown]
  - Hospitalisation [Unknown]
  - General physical health deterioration [Unknown]

NARRATIVE: CASE EVENT DATE: 201705
